FAERS Safety Report 7585633-6 (Version None)
Quarter: 2011Q3

REPORT INFORMATION
  Report Type: 
  Country: None (occurrence: None)
  Receive Date: 20110701
  Receipt Date: 20110627
  Transmission Date: 20111222
  Serious: Yes (Hospitalization, Other)
  Sender: FDA-Public Use
  Company Number: US-CUBIST-2011S1000405

PATIENT
  Age: 63 Year
  Sex: Male
  Weight: 148 kg

DRUGS (6)
  1. ZOSYN [Concomitant]
     Indication: PRODUCT USED FOR UNKNOWN INDICATION
     Route: 065
  2. LEVAQUIN [Concomitant]
     Indication: PRODUCT USED FOR UNKNOWN INDICATION
     Route: 065
  3. CUBICIN [Suspect]
     Route: 042
     Dates: start: 20110513, end: 20110522
  4. CUBICIN [Suspect]
     Route: 042
     Dates: start: 20110505, end: 20110511
  5. CUBICIN [Suspect]
     Indication: OSTEOMYELITIS
     Route: 042
     Dates: start: 20110513, end: 20110522
  6. CUBICIN [Suspect]
     Route: 042
     Dates: start: 20110505, end: 20110511

REACTIONS (2)
  - RESPIRATORY FAILURE [None]
  - EOSINOPHILIC PNEUMONIA [None]
